FAERS Safety Report 8431224-4 (Version None)
Quarter: 2012Q2

REPORT INFORMATION
  Report Type: 
  Country: None (occurrence: None)
  Receive Date: 20120613
  Receipt Date: 20120530
  Transmission Date: 20120825
  Serious: Yes (Hospitalization)
  Sender: FDA-Public Use
  Company Number: JP-AMGEN-JPNSP2011066371

PATIENT
  Age: 55 Year
  Sex: Female

DRUGS (2)
  1. ENBREL [Suspect]
     Indication: RHEUMATOID ARTHRITIS
     Dosage: 50 MG, WEEKLY
     Route: 058
     Dates: start: 20091001, end: 20111001
  2. ENBREL [Suspect]
     Dosage: 25 MG, 2X/WEEK (50 MG, WEEKLY)
     Route: 058
     Dates: start: 20070101, end: 20090101

REACTIONS (1)
  - PSORIASIS [None]
